FAERS Safety Report 8591800-5 (Version None)
Quarter: 2012Q3

REPORT INFORMATION
  Report Type: 
  Country: None (occurrence: None)
  Receive Date: 20120803
  Receipt Date: 20120803
  Transmission Date: 20120928
  Serious: Yes (Other)
  Sender: FDA-Public Use
  Company Number: None

PATIENT
  Sex: Female

DRUGS (2)
  1. LEVOTHYROXINE SODIUM [Suspect]
     Indication: HYPOTHYROIDISM
     Dosage: 45MG ONCE A DAY PO
     Route: 048
  2. SINGULAIR [Concomitant]

REACTIONS (3)
  - ASTHMA [None]
  - HYPOAESTHESIA [None]
  - OEDEMA PERIPHERAL [None]
